FAERS Safety Report 8220135-5 (Version None)
Quarter: 2012Q1

REPORT INFORMATION
  Report Type: 
  Country: None (occurrence: None)
  Receive Date: 20120320
  Receipt Date: 20120313
  Transmission Date: 20120608
  Serious: Yes (Death, Hospitalization, Other)
  Sender: FDA-Public Use
  Company Number: US-ELI_LILLY_AND_COMPANY-US201201008133

PATIENT
  Sex: Female
  Weight: 79.546 kg

DRUGS (5)
  1. LISINOPRIL [Concomitant]
     Dosage: 5 MG, QD
  2. HUMULIN N [Suspect]
     Indication: TYPE 1 DIABETES MELLITUS
     Dosage: 20 U, BID
     Dates: start: 20110801
  3. HUMALOG [Suspect]
     Indication: TYPE 1 DIABETES MELLITUS
     Dosage: 12 U, QID
     Dates: start: 20110301
  4. CITALOPRAM HYDROBROMIDE [Concomitant]
     Dosage: 20 MG, QD
  5. NOVOLIN GE 30/70 [Concomitant]
     Indication: TYPE 1 DIABETES MELLITUS
     Dosage: 20 U, BID

REACTIONS (6)
  - MULTI-ORGAN FAILURE [None]
  - URINARY TRACT INFECTION [None]
  - DISORIENTATION [None]
  - GLYCOSYLATED HAEMOGLOBIN INCREASED [None]
  - BLOOD GLUCOSE INCREASED [None]
  - SEPSIS [None]
